FAERS Safety Report 6377481-X (Version None)
Quarter: 2009Q3

REPORT INFORMATION
  Report Type: 
  Country: None (occurrence: None)
  Receive Date: 20090925
  Receipt Date: 20090917
  Transmission Date: 20100115
  Serious: Yes (Hospitalization)
  Sender: FDA-Public Use
  Company Number: FR-BAYER-200933288GPV

PATIENT
  Age: 54 Year
  Sex: Female

DRUGS (6)
  1. FLUDARABINE [Suspect]
     Indication: CHRONIC LYMPHOCYTIC LEUKAEMIA
     Dosage: 3 CYCLES
  2. RITUXIMAB [Suspect]
     Indication: CHRONIC LYMPHOCYTIC LEUKAEMIA
     Dosage: 3 CYCLES
  3. ANALGESICS [Concomitant]
     Indication: DRUG USE FOR UNKNOWN INDICATION
  4. ANALGESICS [Concomitant]
     Dosage: REDUCING THE DOSE
  5. OPIOIDS [Concomitant]
     Indication: DRUG USE FOR UNKNOWN INDICATION
     Dosage: REDUCING THE DOSE
  6. OPIOIDS [Concomitant]

REACTIONS (9)
  - ALTERED STATE OF CONSCIOUSNESS [None]
  - BLISTER [None]
  - CONFUSIONAL STATE [None]
  - HERPES ZOSTER [None]
  - MENINGITIS [None]
  - PSYCHOMOTOR RETARDATION [None]
  - PYREXIA [None]
  - RASH [None]
  - VASCULITIS CEREBRAL [None]
